FAERS Safety Report 24000721 (Version 1)
Quarter: 2024Q2

REPORT INFORMATION
  Report Type: Spontaneous
  Country: US (occurrence: US)
  Receive Date: 20240621
  Receipt Date: 20240621
  Transmission Date: 20240716
  Serious: No
  Sender: FDA-Public Use
  Company Number: US-MYLANLABS-2024M1053727

PATIENT
  Sex: Female
  Weight: 97.07 kg

DRUGS (1)
  1. WIXELA INHUB [Suspect]
     Active Substance: FLUTICASONE PROPIONATE\SALMETEROL XINAFOATE
     Indication: Chronic obstructive pulmonary disease
     Dosage: 250/50 MICROGRAM, BID
     Route: 055

REACTIONS (3)
  - Rash vesicular [Unknown]
  - Ulcer [Not Recovered/Not Resolved]
  - Incorrect dose administered [Unknown]
